FAERS Safety Report 12072052 (Version 1)
Quarter: 2016Q1

REPORT INFORMATION
  Report Type: Spontaneous
  Country: FR (occurrence: FR)
  Receive Date: 20160212
  Receipt Date: 20160212
  Transmission Date: 20160526
  Serious: Yes (Hospitalization)
  Sender: FDA-Public Use
  Company Number: FR-ROCHE-1709988

PATIENT
  Age: 94 Year
  Sex: Female

DRUGS (12)
  1. JOSACINE [Suspect]
     Active Substance: JOSAMYCIN
     Indication: LUNG DISORDER
     Route: 048
     Dates: start: 201508, end: 201508
  2. PYOSTACINE [Suspect]
     Active Substance: PRISTINAMYCIN
     Indication: LUNG DISORDER
     Route: 048
     Dates: start: 201508, end: 201508
  3. HYDROCHLOROTHIAZIDE. [Suspect]
     Active Substance: HYDROCHLOROTHIAZIDE
     Indication: HYPERTENSION
     Dosage: LONG-TERM TREATMENT
     Route: 048
     Dates: end: 20150817
  4. ROCEPHINE [Suspect]
     Active Substance: CEFTRIAXONE SODIUM
     Indication: LUNG DISORDER
     Route: 065
     Dates: start: 20150811, end: 20150817
  5. LASILIX [Suspect]
     Active Substance: FUROSEMIDE
     Indication: ACUTE RESPIRATORY FAILURE
     Route: 048
     Dates: start: 20150811, end: 20150817
  6. PRAVASTATIN [Concomitant]
     Active Substance: PRAVASTATIN\PRAVASTATIN SODIUM
  7. LEVOTHYROX [Concomitant]
     Active Substance: LEVOTHYROXINE
  8. IRBESARTAN. [Suspect]
     Active Substance: IRBESARTAN
     Indication: HYPERTENSION
     Dosage: LONG-TERM TREATMENT
     Route: 048
     Dates: end: 20150817
  9. XARELTO [Concomitant]
     Active Substance: RIVAROXABAN
  10. PRAVASTATIN [Concomitant]
     Active Substance: PRAVASTATIN\PRAVASTATIN SODIUM
  11. MIANSERINE [Concomitant]
     Active Substance: MIANSERIN HYDROCHLORIDE
  12. TRAVATAN [Concomitant]
     Active Substance: TRAVOPROST
     Route: 065

REACTIONS (1)
  - Hyponatraemia [Recovering/Resolving]

NARRATIVE: CASE EVENT DATE: 20150812
